FAERS Safety Report 19749583 (Version 1)
Quarter: 2021Q3

REPORT INFORMATION
  Report Type: Spontaneous
  Country: BR (occurrence: BR)
  Receive Date: 20210826
  Receipt Date: 20210826
  Transmission Date: 20211014
  Serious: Yes (Other)
  Sender: FDA-Public Use
  Company Number: BR-ORGANON-O2108BRA001944

PATIENT
  Age: 29 Year
  Sex: Female
  Weight: 52 kg

DRUGS (1)
  1. IMPLANON NXT [Suspect]
     Active Substance: ETONOGESTREL
     Indication: CONTRACEPTION
     Dosage: 1 IMPLANT IN LEFT ARM
     Route: 059
     Dates: start: 202004, end: 20200722

REACTIONS (8)
  - Vomiting [Unknown]
  - Intermenstrual bleeding [Unknown]
  - Hormone level abnormal [Recovering/Resolving]
  - Complication associated with device [Recovered/Resolved]
  - Syncope [Unknown]
  - Anaemia [Unknown]
  - Peripheral swelling [Unknown]
  - Heavy menstrual bleeding [Recovered/Resolved]

NARRATIVE: CASE EVENT DATE: 2020
